APPROVED DRUG PRODUCT: HALOPERIDOL
Active Ingredient: HALOPERIDOL LACTATE
Strength: EQ 2MG BASE/ML
Dosage Form/Route: CONCENTRATE;ORAL
Application: A073364 | Product #001 | TE Code: AA
Applicant: LANNETT CO INC
Approved: Sep 28, 1993 | RLD: No | RS: No | Type: RX